FAERS Safety Report 9344615 (Version 1)
Quarter: 2013Q2

REPORT INFORMATION
  Report Type: Spontaneous
  Country: NL (occurrence: NL)
  Receive Date: 20130612
  Receipt Date: 20130612
  Transmission Date: 20140414
  Serious: Yes (Death, Other)
  Sender: FDA-Public Use
  Company Number: PHHY2013NL059041

PATIENT
  Age: 43 Year
  Sex: Male

DRUGS (4)
  1. CYTARABINE [Suspect]
     Indication: ACUTE MYELOID LEUKAEMIA RECURRENT
  2. VORICONAZOLE [Suspect]
  3. VANCOMYCIN [Concomitant]
  4. CEFTAZIDIME [Concomitant]

REACTIONS (6)
  - Fusarium infection [Fatal]
  - Rash erythematous [Fatal]
  - Fungal infection [Fatal]
  - Febrile neutropenia [Unknown]
  - General physical health deterioration [Unknown]
  - Drug ineffective [Unknown]
